FAERS Safety Report 8310723-X (Version None)
Quarter: 2012Q2

REPORT INFORMATION
  Report Type: 
  Country: None (occurrence: None)
  Receive Date: 20120425
  Receipt Date: 20120419
  Transmission Date: 20120825
  Serious: Yes (Other)
  Sender: FDA-Public Use
  Company Number: US-JNJFOC-20120409202

PATIENT
  Sex: Female
  Weight: 76.66 kg

DRUGS (7)
  1. FUROSEMIDE [Concomitant]
     Indication: CARDIAC FAILURE CONGESTIVE
     Dates: start: 20090101
  2. SIMPONI [Suspect]
     Indication: RHEUMATOID ARTHRITIS
     Route: 058
  3. SINGULAIR [Concomitant]
     Indication: SINUSITIS
     Route: 048
  4. REQUIP [Concomitant]
     Indication: RESTLESS LEGS SYNDROME
     Route: 048
  5. CARVEDILOL [Concomitant]
     Indication: CARDIAC FAILURE CONGESTIVE
     Route: 048
     Dates: start: 20090101
  6. ALL OTHER THERAPEUTIC PRODUCTS [Concomitant]
     Indication: ORAL HERPES
     Route: 048
     Dates: start: 20020101
  7. LEFLUNOMIDE [Concomitant]
     Indication: RHEUMATOID ARTHRITIS
     Route: 048

REACTIONS (3)
  - DRUG DOSE OMISSION [None]
  - DEVICE MALFUNCTION [None]
  - HYPOTHYROIDISM [None]
